FAERS Safety Report 6062827-2 (Version None)
Quarter: 2009Q1

REPORT INFORMATION
  Report Type: 
  Country: None (occurrence: None)
  Receive Date: 20090202
  Receipt Date: 20090202
  Transmission Date: 20090719
  Serious: Yes (Death)
  Sender: FDA-Public Use
  Company Number: None

PATIENT
  Sex: Female
  Weight: 66.2 kg

DRUGS (13)
  1. XIGRIS [Suspect]
     Indication: SEPSIS
     Dosage: 24 MCG/KG/HR CONT INFUSION IV DRIP
     Route: 041
     Dates: start: 20090119, end: 20090122
  2. SODIUM BICARBONATE DRIP [Concomitant]
  3. PROTONIX [Concomitant]
  4. SOLU-CORTEF [Concomitant]
  5. ZOFRAN [Concomitant]
  6. PHENYLEPHRINE DRIP [Concomitant]
  7. LEVOPHED DRIP [Concomitant]
  8. VASOPRESSIN DRIP [Concomitant]
  9. LEVAQUIN [Concomitant]
  10. ROCEPHIN [Concomitant]
  11. VANCOMYCIN [Concomitant]
  12. AZACTAM [Concomitant]
  13. CALCIUM GLUCONATE [Concomitant]

REACTIONS (4)
  - HAEMORRHAGE INTRACRANIAL [None]
  - METABOLIC ACIDOSIS [None]
  - PNEUMONIA [None]
  - PUPIL FIXED [None]
